FAERS Safety Report 17317092 (Version 1)
Quarter: 2020Q1

REPORT INFORMATION
  Report Type: Spontaneous
  Country: IT (occurrence: IT)
  Receive Date: 20200124
  Receipt Date: 20200124
  Transmission Date: 20200409
  Serious: Yes (Other)
  Sender: FDA-Public Use
  Company Number: IT-MYLANLABS-2020M1007344

PATIENT
  Age: 48 Year
  Sex: Male

DRUGS (2)
  1. AZATHIOPRINE MYLAN [Suspect]
     Active Substance: AZATHIOPRINE
     Indication: CROHN^S DISEASE
     Dosage: UNK
  2. INFLIXIMAB [Suspect]
     Active Substance: INFLIXIMAB
     Indication: CROHN^S DISEASE
     Dosage: UNK

REACTIONS (4)
  - Metastases to lymph nodes [Unknown]
  - Small intestine adenocarcinoma [Unknown]
  - Hypocalcaemia [Unknown]
  - Hypoproteinaemia [Unknown]
